FAERS Safety Report 14477137 (Version 1)
Quarter: 2018Q1

REPORT INFORMATION
  Report Type: Report from Study
  Country: US (occurrence: US)
  Receive Date: 20180201
  Receipt Date: 20180201
  Transmission Date: 20180509
  Serious: No
  Sender: FDA-Public Use
  Company Number: US-EXELIXIS-CABO-17009447

PATIENT
  Sex: Female
  Weight: 66.21 kg

DRUGS (31)
  1. LISINOPRIL. [Concomitant]
     Active Substance: LISINOPRIL
  2. HEPARIN LOCK FLUSH [Concomitant]
     Active Substance: HEPARIN SODIUM
  3. INLYTA [Concomitant]
     Active Substance: AXITINIB
  4. MAGNESIUM OXIDE. [Concomitant]
     Active Substance: MAGNESIUM OXIDE
  5. POTASSIUM CHLORIDE. [Concomitant]
     Active Substance: POTASSIUM CHLORIDE
  6. AMLODIPINE BESYLATE. [Concomitant]
     Active Substance: AMLODIPINE BESYLATE
  7. COQ10 [Concomitant]
     Active Substance: UBIDECARENONE
  8. FISH OIL [Concomitant]
     Active Substance: FISH OIL
  9. AXITINIB [Concomitant]
     Active Substance: AXITINIB
  10. CABOMETYX [Suspect]
     Active Substance: CABOZANTINIB S-MALATE
     Dosage: UNK UNK, QD
     Route: 048
     Dates: start: 20160820, end: 20170630
  11. ONDANSETRON HCL [Concomitant]
     Active Substance: ONDANSETRON HYDROCHLORIDE
  12. OXYCODONE HYDROCHLORIDE. [Concomitant]
     Active Substance: OXYCODONE HYDROCHLORIDE
  13. METOPROLOL TARTRATE. [Concomitant]
     Active Substance: METOPROLOL TARTRATE
  14. NEXIUM [Concomitant]
     Active Substance: ESOMEPRAZOLE MAGNESIUM
  15. GABAPENTIN. [Concomitant]
     Active Substance: GABAPENTIN
  16. MS CONTIN [Concomitant]
     Active Substance: MORPHINE SULFATE
  17. FUROSEMIDE. [Concomitant]
     Active Substance: FUROSEMIDE
  18. ZYRTEC [Concomitant]
     Active Substance: CETIRIZINE HYDROCHLORIDE
  19. CABOMETYX [Suspect]
     Active Substance: CABOZANTINIB S-MALATE
     Indication: RENAL CANCER
     Dosage: 40 MG, QD
     Route: 048
     Dates: start: 201603, end: 20160630
  20. OXYCONTIN [Concomitant]
     Active Substance: OXYCODONE HYDROCHLORIDE
  21. DOCUSATE SODIUM + SENNA [Concomitant]
     Active Substance: DOCUSATE SODIUM\SENNOSIDE A\SENNOSIDE B
  22. DEXAMETHASONE. [Concomitant]
     Active Substance: DEXAMETHASONE
  23. CYMBALTA [Concomitant]
     Active Substance: DULOXETINE HYDROCHLORIDE
  24. NORVASC [Concomitant]
     Active Substance: AMLODIPINE BESYLATE
  25. LEVOTHROID [Concomitant]
     Active Substance: LEVOTHYROXINE SODIUM
  26. NYSTATIN. [Concomitant]
     Active Substance: NYSTATIN
  27. NIVOLUMAB [Concomitant]
     Active Substance: NIVOLUMAB
  28. LEVOTHYROXINE SODIUM. [Concomitant]
     Active Substance: LEVOTHYROXINE SODIUM
  29. MAGIC SWIZZLE [Concomitant]
  30. ASA [Concomitant]
     Active Substance: ASPIRIN
  31. TRAMADOL HCL [Concomitant]
     Active Substance: TRAMADOL HYDROCHLORIDE

REACTIONS (4)
  - Hepatic lesion [Unknown]
  - Diarrhoea [Unknown]
  - Drug intolerance [Unknown]
  - Decreased appetite [Unknown]
